FAERS Safety Report 7568722-1 (Version None)
Quarter: 2011Q2

REPORT INFORMATION
  Report Type: 
  Country: None (occurrence: None)
  Receive Date: 20110623
  Receipt Date: 20110617
  Transmission Date: 20111010
  Serious: Yes (Other)
  Sender: FDA-Public Use
  Company Number: AT-MERCK-1106AUT00003

PATIENT
  Age: 18 Year
  Sex: Female
  Weight: 55 kg

DRUGS (3)
  1. DESLORATADINE [Suspect]
     Indication: ASTHMA
     Route: 048
     Dates: start: 20110412
  2. FLUTICASONE PROPIONATE [Suspect]
     Indication: ASTHMA
     Route: 065
     Dates: start: 20110412
  3. SINGULAIR [Suspect]
     Indication: ASTHMA
     Route: 048
     Dates: start: 20110412, end: 20110430

REACTIONS (1)
  - PHOTOSENSITIVITY REACTION [None]
